FAERS Safety Report 10097959 (Version 3)
Quarter: 2014Q2

REPORT INFORMATION
  Report Type: Spontaneous
  Country: US (occurrence: US)
  Receive Date: 20140423
  Receipt Date: 20140514
  Transmission Date: 20141212
  Serious: Yes (Hospitalization, Other)
  Sender: FDA-Public Use
  Company Number: US-BEH-2014041804

PATIENT
  Age: 65 Year
  Sex: Female

DRUGS (15)
  1. TRAMADOL [Concomitant]
  2. MUCOMYST [Concomitant]
  3. ZEMAIRA [Suspect]
     Indication: ALPHA-1 ANTI-TRYPSIN
     Dosage: 60 MG/KG
     Route: 042
  4. ALBUTEROL [Concomitant]
  5. SINGULAIR [Concomitant]
  6. SYMBICORT [Concomitant]
  7. CARTIA [Concomitant]
  8. AMIODARONE [Concomitant]
  9. ELIQUIS [Concomitant]
  10. XOPENEX [Concomitant]
  11. SERTRALINE [Concomitant]
  12. MUCINEX [Concomitant]
  13. LASIX [Concomitant]
  14. OMEPRAZOLE [Concomitant]
  15. SYNTHROID [Concomitant]

REACTIONS (2)
  - Pneumonia bacterial [Recovered/Resolved]
  - Bronchitis [Recovered/Resolved]
